FAERS Safety Report 7097816-2 (Version None)
Quarter: 2010Q4

REPORT INFORMATION
  Report Type: 
  Country: None (occurrence: None)
  Receive Date: 20101103
  Receipt Date: 20101026
  Transmission Date: 20110411
  Serious: Yes (Other)
  Sender: FDA-Public Use
  Company Number: 2010MA003948

PATIENT
  Age: 71 Year
  Sex: Male

DRUGS (8)
  1. GABAPENTIN [Suspect]
     Indication: DIABETIC NEUROPATHY
     Dosage: 300 MG;TIW
  2. ACETYLSALICYLIC ACID [Concomitant]
  3. ATENOLOL [Concomitant]
  4. ATORVASTATIN CALCIUM [Concomitant]
  5. CALCIUM ACETATE [Concomitant]
  6. INSULIN [Concomitant]
  7. GABAPENTIN [Concomitant]
  8. VANCOMYCIN [Concomitant]

REACTIONS (23)
  - AMNESIA [None]
  - BLOOD BICARBONATE DECREASED [None]
  - BLOOD CREATININE INCREASED [None]
  - BLOOD GLUCOSE INCREASED [None]
  - BLOOD POTASSIUM INCREASED [None]
  - BLOOD SODIUM DECREASED [None]
  - BLOOD UREA INCREASED [None]
  - CEREBRAL ATROPHY [None]
  - CONFUSIONAL STATE [None]
  - DEMENTIA [None]
  - DIALYSIS [None]
  - DRUG TOXICITY [None]
  - FOOT AMPUTATION [None]
  - HAEMODIALYSIS [None]
  - HAEMOGLOBIN DECREASED [None]
  - HALLUCINATION [None]
  - IMPAIRED HEALING [None]
  - MENTAL STATUS CHANGES [None]
  - PERIPHERAL ISCHAEMIA [None]
  - POST PROCEDURAL COMPLICATION [None]
  - POSTOPERATIVE WOUND INFECTION [None]
  - SKIN ULCER [None]
  - SOMNOLENCE [None]
